FAERS Safety Report 4909527-7 (Version None)
Quarter: 2006Q1

REPORT INFORMATION
  Report Type: 
  Country: None (occurrence: None)
  Receive Date: 20060213
  Receipt Date: 20050823
  Transmission Date: 20060701
  Serious: Yes (Hospitalization, Disabling, Other)
  Sender: FDA-Public Use
  Company Number: US-MERCK-0508USA03904

PATIENT
  Age: 69 Year
  Sex: Female
  Weight: 59 kg

DRUGS (4)
  1. VIOXX [Suspect]
     Indication: OSTEOARTHRITIS
     Route: 048
     Dates: start: 20010213, end: 20040101
  2. PREMARIN [Concomitant]
     Route: 065
  3. PAXIL [Concomitant]
     Route: 065
     Dates: start: 20020101
  4. LOTREL [Concomitant]
     Route: 065

REACTIONS (6)
  - ATHETOSIS [None]
  - BALLISMUS [None]
  - CEREBROVASCULAR ACCIDENT [None]
  - CEREBROVASCULAR DISORDER [None]
  - DEPRESSION [None]
  - OSTEOARTHRITIS [None]
